FAERS Safety Report 5903739-1 (Version None)
Quarter: 2008Q3

REPORT INFORMATION
  Report Type: 
  Country: None (occurrence: None)
  Receive Date: 20080930
  Receipt Date: 20080910
  Transmission Date: 20090109
  Serious: Yes (Other)
  Sender: FDA-Public Use
  Company Number: US-PFIZER INC-2008080062

PATIENT
  Age: 47 Year

DRUGS (2)
  1. NELFINAVIR MESILATE [Suspect]
     Indication: HIV INFECTION
  2. TAXOTERE [Suspect]
     Indication: NON-SMALL CELL LUNG CANCER

REACTIONS (1)
  - OESOPHAGITIS [None]
